FAERS Safety Report 9055817 (Version 1)
Quarter: 2013Q1

REPORT INFORMATION
  Report Type: Spontaneous
  Country: US (occurrence: US)
  Receive Date: 20130206
  Receipt Date: 20130206
  Transmission Date: 20140127
  Serious: Yes (Death, Other)
  Sender: FDA-Public Use
  Company Number: CHPA2013US002591

PATIENT
  Age: 53 Year
  Sex: Male

DRUGS (6)
  1. DEXTROMETHORPHAN HYDROBROMIDE [Suspect]
     Dosage: UNK, UNK
     Route: 065
  2. HEROIN [Suspect]
     Dosage: UNK, UNK
     Route: 065
  3. CODEINE [Suspect]
     Dosage: UNK, UNK
     Route: 065
  4. OLANZAPINE [Suspect]
     Dosage: UNK, UNK
     Route: 065
  5. ALPRAZOLAM [Suspect]
     Dosage: UNK, UNK
     Route: 065
  6. FLUOXETINE [Suspect]
     Dosage: UNK, UNK
     Route: 065

REACTIONS (2)
  - Intentional drug misuse [Fatal]
  - Cardio-respiratory arrest [Unknown]
